FAERS Safety Report 23265502 (Version 1)
Quarter: 2023Q4

REPORT INFORMATION
  Report Type: Spontaneous
  Country: US (occurrence: US)
  Receive Date: 20231206
  Receipt Date: 20231206
  Transmission Date: 20240110
  Serious: Yes (Other)
  Sender: FDA-Public Use
  Company Number: US-BRISTOL-MYERS SQUIBB COMPANY-2023-175587

PATIENT
  Age: 52 Year
  Sex: Female

DRUGS (2)
  1. ELIQUIS [Suspect]
     Active Substance: APIXABAN
     Indication: Product used for unknown indication
     Route: 048
  2. ELIQUIS [Suspect]
     Active Substance: APIXABAN

REACTIONS (6)
  - Deep vein thrombosis [Unknown]
  - Thrombosis [Unknown]
  - Blood viscosity increased [Unknown]
  - Autoimmune disorder [Unknown]
  - Memory impairment [Unknown]
  - Treatment noncompliance [Unknown]
